FAERS Safety Report 17991309 (Version 1)
Quarter: 2020Q3

REPORT INFORMATION
  Report Type: Spontaneous
  Country: US (occurrence: US)
  Receive Date: 20200707
  Receipt Date: 20200707
  Transmission Date: 20201103
  Serious: Yes (Other)
  Sender: FDA-Public Use
  Company Number: US-NAPPMUNDI-GBR-2020-0077594

PATIENT
  Sex: Male

DRUGS (10)
  1. NON?PMN MORPHINE SULFATE [Suspect]
     Active Substance: MORPHINE SULFATE
     Dosage: UNK UNK, BOLUS (MULTIPLE DOSES)
     Route: 041
  2. MIDAZOLAM. [Suspect]
     Active Substance: MIDAZOLAM
     Indication: SEDATION
     Dosage: 0.1 MG/KG, BOLUS (4 DOSES)
     Route: 041
  3. MIDAZOLAM. [Suspect]
     Active Substance: MIDAZOLAM
     Dosage: 0.1 MG/KG, BOLUS, (18 DOSES)
     Route: 041
  4. NON?PMN MORPHINE SULFATE [Suspect]
     Active Substance: MORPHINE SULFATE
     Dosage: 0.1 MG/KG, BOLUS, (10 DOSES)
     Route: 041
  5. NON?PMN MORPHINE SULFATE [Suspect]
     Active Substance: MORPHINE SULFATE
     Dosage: UNK (MAXIMUM OF 0.09 MG/KH/H)
     Route: 041
  6. MIDAZOLAM. [Suspect]
     Active Substance: MIDAZOLAM
     Dosage: UNK (0.06 MG/KG/H)
     Route: 041
  7. DEXMEDETOMIDINE. [Suspect]
     Active Substance: DEXMEDETOMIDINE
     Indication: SEDATION
     Dosage: UNK (1 MCG/KG/H)
     Route: 041
  8. MIDAZOLAM. [Suspect]
     Active Substance: MIDAZOLAM
     Dosage: UNK UNK, BOLUS (MULTIPLE DOSES)
     Route: 041
  9. NON?PMN MORPHINE SULFATE [Suspect]
     Active Substance: MORPHINE SULFATE
     Indication: SEDATION
     Dosage: 0.1 MG/KG, BOLUS, (2 DOSES)
     Route: 041
  10. LORAZEPAM. [Suspect]
     Active Substance: LORAZEPAM
     Indication: SEDATION
     Dosage: 0.6 MG/KG, Q6H
     Route: 042

REACTIONS (2)
  - Drug ineffective [Unknown]
  - Delirium [Recovered/Resolved]
